FAERS Safety Report 7340237-5 (Version None)
Quarter: 2011Q1

REPORT INFORMATION
  Report Type: 
  Country: None (occurrence: None)
  Receive Date: 20110309
  Receipt Date: 20110224
  Transmission Date: 20110831
  Serious: Yes (Hospitalization)
  Sender: FDA-Public Use
  Company Number: PHHY2011IT15481

PATIENT
  Sex: Female

DRUGS (7)
  1. METOPROLOL [Concomitant]
     Dosage: UNK
  2. CRESTOR [Concomitant]
  3. KCL-RETARD [Concomitant]
  4. TEGRETOL [Suspect]
     Indication: EPILEPSY
     Dosage: 2 DF, UNK
     Route: 048
     Dates: start: 20110215
  5. TRIATEC [Concomitant]
  6. SEROQUEL [Concomitant]
  7. ASPIRIN [Concomitant]

REACTIONS (8)
  - URINE OUTPUT DECREASED [None]
  - ANTICONVULSANT DRUG LEVEL INCREASED [None]
  - VOMITING [None]
  - SOPOR [None]
  - SYNCOPE [None]
  - BRADYPHRENIA [None]
  - LOSS OF CONSCIOUSNESS [None]
  - AZOTAEMIA [None]
